FAERS Safety Report 10412620 (Version 2)
Quarter: 2014Q3

REPORT INFORMATION
  Report Type: Spontaneous
  Country: JP (occurrence: JP)
  Receive Date: 20140827
  Receipt Date: 20140918
  Transmission Date: 20150326
  Serious: Yes (Hospitalization)
  Sender: FDA-Public Use
  Company Number: JP-SA-2014SA114497

PATIENT
  Age: 47 Year
  Sex: Female
  Weight: 31 kg

DRUGS (3)
  1. CISPLATIN. [Suspect]
     Active Substance: CISPLATIN
     Indication: TONGUE CANCER METASTATIC
     Dosage: DOSE: 75 MG/M2, DAY 1 VIA CVAD
     Route: 042
     Dates: start: 201206
  2. DOCETAXEL [Suspect]
     Active Substance: DOCETAXEL
     Indication: TONGUE CANCER METASTATIC
     Dosage: DOSE: 65 MG/M2, DAY 1 VIA CVAD
     Route: 042
     Dates: start: 201206
  3. FLUOROURACIL. [Suspect]
     Active Substance: FLUOROURACIL
     Indication: TONGUE CANCER METASTATIC
     Dosage: DOSE: 750 MG/M2, DAY 1-5 VIA CVAD
     Route: 042
     Dates: start: 201206

REACTIONS (8)
  - Bone marrow failure [Recovered/Resolved]
  - Blood beta-D-glucan increased [Recovered/Resolved]
  - Fungaemia [Recovering/Resolving]
  - Fungal test positive [Unknown]
  - Systemic inflammatory response syndrome [Unknown]
  - White blood cell count decreased [Recovered/Resolved]
  - C-reactive protein increased [Recovered/Resolved]
  - Pyrexia [Recovered/Resolved]

NARRATIVE: CASE EVENT DATE: 201206
